FAERS Safety Report 10363234 (Version 3)
Quarter: 2020Q1

REPORT INFORMATION
  Report Type: Report from Study
  Country: US (occurrence: US)
  Receive Date: 20140805
  Receipt Date: 20200319
  Transmission Date: 20200409
  Serious: Yes (Other)
  Sender: FDA-Public Use
  Company Number: US-SA-2013SA103585

PATIENT
  Sex: Female

DRUGS (1)
  1. TERIFLUNOMIDE. [Suspect]
     Active Substance: TERIFLUNOMIDE
     Indication: MULTIPLE SCLEROSIS
     Dosage: 14 MG,QD
     Route: 048
     Dates: start: 20130403

REACTIONS (9)
  - Paraesthesia [Recovered/Resolved]
  - Pituitary tumour [Unknown]
  - Gait disturbance [Recovered/Resolved]
  - Blood cholesterol increased [Unknown]
  - Thyroid disorder [Unknown]
  - Burning sensation [Recovered/Resolved]
  - Hypertension [Unknown]
  - Pain in extremity [Unknown]
  - Peripheral swelling [Unknown]

NARRATIVE: CASE EVENT DATE: 2013
